FAERS Safety Report 6672850-2 (Version None)
Quarter: 2010Q2

REPORT INFORMATION
  Report Type: 
  Country: None (occurrence: None)
  Receive Date: 20100408
  Receipt Date: 20100327
  Transmission Date: 20101027
  Serious: Yes (Hospitalization)
  Sender: FDA-Public Use
  Company Number: PHHY2010MX19011

PATIENT
  Sex: Female

DRUGS (3)
  1. DIOVAN HCT [Suspect]
     Indication: HYPERTENSION
     Dosage: 1 TABLET (80/12.5 MG ) PER DAY
     Route: 048
     Dates: start: 20081203
  2. GALVUS MET [Suspect]
     Indication: DIABETES MELLITUS
     Dosage: 500/50 MG
     Dates: start: 20090704
  3. FUROSEMIDE [Concomitant]
     Indication: SWELLING
     Dosage: UNK
     Dates: start: 20090601

REACTIONS (3)
  - RENAL CANCER [None]
  - SURGERY [None]
  - UTERINE DISORDER [None]
